FAERS Safety Report 14352310 (Version 1)
Quarter: 2018Q1

REPORT INFORMATION
  Report Type: Other
  Country: US (occurrence: US)
  Receive Date: 20180104
  Receipt Date: 20180104
  Transmission Date: 20180509
  Serious: Yes (Death)
  Sender: FDA-Public Use
  Company Number: US-OSMOTICA_PHARMACEUTICAL_US_LLC-POI0573201800003

PATIENT
  Age: 68 Year
  Sex: Female

DRUGS (9)
  1. AMLODIPINE [Suspect]
     Active Substance: AMLODIPINE BESYLATE
     Dates: end: 2016
  2. ACETAMINOPHEN WITH HYDROCODONE [Suspect]
     Active Substance: ACETAMINOPHEN\HYDROCODONE
     Dates: end: 2016
  3. METOPROLOL. [Suspect]
     Active Substance: METOPROLOL
     Dates: end: 2016
  4. PHENOTHIAZINE [Suspect]
     Active Substance: PHENOTHIAZINE
     Dates: end: 2016
  5. AMITRIPTYLINE [Suspect]
     Active Substance: AMITRIPTYLINE
     Dates: end: 2016
  6. LISINOPRIL. [Suspect]
     Active Substance: LISINOPRIL
     Dates: end: 2016
  7. OXYBUTYNIN CHLORIDE. [Suspect]
     Active Substance: OXYBUTYNIN CHLORIDE
     Dates: end: 2016
  8. ATORVASTATIN [Suspect]
     Active Substance: ATORVASTATIN
     Dates: end: 2016
  9. DIGOXIN. [Suspect]
     Active Substance: DIGOXIN
     Dates: end: 2016

REACTIONS (3)
  - Cardiac arrest [Fatal]
  - Respiratory arrest [Fatal]
  - Completed suicide [Fatal]

NARRATIVE: CASE EVENT DATE: 2016
